FAERS Safety Report 9716303 (Version 1)
Quarter: 2013Q4

REPORT INFORMATION
  Report Type: Spontaneous
  Country: US (occurrence: US)
  Receive Date: 20131127
  Receipt Date: 20131127
  Transmission Date: 20140711
  Serious: Yes (Hospitalization)
  Sender: FDA-Public Use
  Company Number: US-MALLINCKRODT-T201304955

PATIENT
  Age: 23 Year
  Sex: Female

DRUGS (2)
  1. FENTANYL TRANSDERMAL SYSTEM [Suspect]
     Indication: PRODUCT USED FOR UNKNOWN INDICATION
     Dosage: UNK
     Route: 048
  2. AMITRIPTYLINE [Suspect]
     Indication: PRODUCT USED FOR UNKNOWN INDICATION
     Dosage: UNK
     Route: 048

REACTIONS (9)
  - Suicide attempt [Unknown]
  - Irritability [Unknown]
  - Delusion [Unknown]
  - Agitation [Unknown]
  - Confusional state [Unknown]
  - Hallucination [Unknown]
  - Hypotension [Unknown]
  - Tachycardia [Unknown]
  - Tremor [Unknown]
